FAERS Safety Report 20231239 (Version 1)
Quarter: 2021Q4

REPORT INFORMATION
  Report Type: Spontaneous
  Country: GR (occurrence: GR)
  Receive Date: 20211227
  Receipt Date: 20211227
  Transmission Date: 20220303
  Serious: No
  Sender: FDA-Public Use
  Company Number: GR-UCBSA-2021060376

PATIENT
  Sex: Female

DRUGS (3)
  1. NEUPRO [Suspect]
     Active Substance: ROTIGOTINE
     Indication: Product used for unknown indication
     Dosage: 2MG
  2. NEUPRO [Suspect]
     Active Substance: ROTIGOTINE
     Dosage: 4MG
  3. NEUPRO [Suspect]
     Active Substance: ROTIGOTINE
     Dosage: 6MG

REACTIONS (1)
  - Product adhesion issue [Unknown]
